FAERS Safety Report 8009183-8 (Version None)
Quarter: 2011Q4

REPORT INFORMATION
  Report Type: 
  Country: None (occurrence: None)
  Receive Date: 20111227
  Receipt Date: 20111215
  Transmission Date: 20120403
  Serious: Yes (Other)
  Sender: FDA-Public Use
  Company Number: JP-ASTRAZENECA-2011SE77729

PATIENT
  Age: 48 Year
  Sex: Male

DRUGS (3)
  1. DAIO-KANZO-TO [Suspect]
     Route: 048
  2. FAMOTIDINE [Suspect]
     Route: 065
  3. MEROPENEM [Suspect]
     Route: 042

REACTIONS (1)
  - INTERSTITIAL LUNG DISEASE [None]
